FAERS Safety Report 7584539-6 (Version None)
Quarter: 2011Q2

REPORT INFORMATION
  Report Type: 
  Country: None (occurrence: None)
  Receive Date: 20110630
  Receipt Date: 20110623
  Transmission Date: 20111010
  Serious: Yes (Hospitalization, Other)
  Sender: FDA-Public Use
  Company Number: US-PFIZER INC-2011139888

PATIENT
  Sex: Female

DRUGS (3)
  1. COUMADIN [Concomitant]
     Dosage: 5 MG, UNK
     Route: 048
  2. REVATIO [Suspect]
     Indication: PULMONARY HYPERTENSION
     Dosage: 20 MG, 2X/DAY
     Route: 048
     Dates: start: 20110601
  3. SILDENAFIL CITRATE [Suspect]
     Indication: PULMONARY HYPERTENSION
     Dosage: 12.5 MG, UNK
     Route: 048
     Dates: start: 20110601

REACTIONS (2)
  - HYPERTENSION [None]
  - ATRIOVENTRICULAR BLOCK [None]
